FAERS Safety Report 20645169 (Version 2)
Quarter: 2022Q2

REPORT INFORMATION
  Report Type: Spontaneous
  Country: CH (occurrence: CH)
  Receive Date: 20220328
  Receipt Date: 20220429
  Transmission Date: 20220721
  Serious: Yes (Hospitalization, Other)
  Sender: FDA-Public Use
  Company Number: CH-TAKEDA-2022TEU002053

PATIENT
  Age: 79 Year
  Sex: Female

DRUGS (5)
  1. PANTOZOL [Suspect]
     Active Substance: PANTOPRAZOLE SODIUM
     Dosage: 40 MILLIGRAM, QD
     Route: 048
     Dates: start: 20211120, end: 20211231
  2. HYDROCHLOROTHIAZIDE\VALSARTAN [Suspect]
     Active Substance: HYDROCHLOROTHIAZIDE\VALSARTAN
     Dosage: UNK
     Route: 048
     Dates: end: 20211231
  3. BISOPROLOL FUMARATE [Concomitant]
     Active Substance: BISOPROLOL FUMARATE
     Dosage: UNK
  4. ATORVASTATIN [Concomitant]
     Active Substance: ATORVASTATIN
     Dosage: UNK
  5. ASPIRIN [Concomitant]
     Active Substance: ASPIRIN
     Dosage: 100 MILLIGRAM

REACTIONS (5)
  - Electrolyte imbalance [Recovered/Resolved]
  - Electrocardiogram QT prolonged [Unknown]
  - Inflammation [Unknown]
  - Blood thyroid stimulating hormone decreased [Unknown]
  - Blood parathyroid hormone decreased [Unknown]

NARRATIVE: CASE EVENT DATE: 20211231
